FAERS Safety Report 18152061 (Version 3)
Quarter: 2020Q3

REPORT INFORMATION
  Report Type: Spontaneous
  Country: IT (occurrence: IT)
  Receive Date: 20200814
  Receipt Date: 20200917
  Transmission Date: 20201103
  Serious: Yes (Other)
  Sender: FDA-Public Use
  Company Number: IT-PFIZER INC-2020308249

PATIENT
  Age: 62 Year
  Sex: Female

DRUGS (11)
  1. DOCETAXEL. [Suspect]
     Active Substance: DOCETAXEL
     Indication: BRONCHIAL CARCINOMA
     Dosage: 125.3 MG, CYCLIC
     Dates: start: 20141124, end: 20190711
  2. TRASTUZUMAB. [Suspect]
     Active Substance: TRASTUZUMAB
     Indication: BRONCHIAL CARCINOMA
     Dosage: 504 MG, CYCLIC
     Dates: start: 20141124, end: 20190926
  3. PALONOSETRON HYDROCHLORIDE. [Concomitant]
     Active Substance: PALONOSETRON HYDROCHLORIDE
     Dosage: 0.25 MG
     Dates: start: 20140901
  4. CHLORPHENAMINE [Concomitant]
     Active Substance: CHLORPHENIRAMINE MALEATE
     Dosage: 10 MG
     Dates: start: 20140901
  5. APREPITANT. [Concomitant]
     Active Substance: APREPITANT
     Dosage: 125 MG
     Dates: start: 20140901
  6. TROPISETRON [Concomitant]
     Active Substance: TROPISETRON
     Dosage: 5 MG
     Dates: start: 20140901
  7. DEXAMETHASONE. [Concomitant]
     Active Substance: DEXAMETHASONE
     Dosage: 12 MG
     Dates: start: 20140901
  8. EPIRUBICIN HCL [Suspect]
     Active Substance: EPIRUBICIN HYDROCHLORIDE
     Indication: BRONCHIAL CARCINOMA
     Dosage: 149.4 MG, CYCLIC
     Dates: start: 20140901, end: 20141103
  9. CYCLOPHOSPHAMIDE. [Suspect]
     Active Substance: CYCLOPHOSPHAMIDE
     Indication: BRONCHIAL CARCINOMA
     Dosage: 996 MG, CYCLIC
     Dates: start: 20140901, end: 20141103
  10. RANITIDINE. [Concomitant]
     Active Substance: RANITIDINE
     Dosage: 50 MG
     Dates: start: 20140901
  11. METHYLPREDNISOLONE. [Concomitant]
     Active Substance: METHYLPREDNISOLONE
     Dosage: 125 MG
     Dates: start: 20140901

REACTIONS (1)
  - Acute pulmonary oedema [Unknown]

NARRATIVE: CASE EVENT DATE: 20190926
